FAERS Safety Report 25322059 (Version 1)
Quarter: 2025Q2

REPORT INFORMATION
  Report Type: Spontaneous
  Country: FR (occurrence: FR)
  Receive Date: 20250516
  Receipt Date: 20250516
  Transmission Date: 20250717
  Serious: Yes (Congenital Anomaly, Other)
  Sender: JOHNSON AND JOHNSON
  Company Number: FR-JNJFOC-20250513197

PATIENT
  Sex: Female

DRUGS (2)
  1. STELARA [Suspect]
     Active Substance: USTEKINUMAB
     Indication: Crohn^s disease
     Route: 064
  2. ARAVA [Suspect]
     Active Substance: LEFLUNOMIDE
     Indication: Ankylosing spondylitis
     Route: 064
     Dates: start: 20200805, end: 20200930

REACTIONS (2)
  - Tooth agenesis [Not Recovered/Not Resolved]
  - Foetal exposure during pregnancy [Recovered/Resolved]

NARRATIVE: CASE EVENT DATE: 20200805
